FAERS Safety Report 4564250-6 (Version None)
Quarter: 2005Q1

REPORT INFORMATION
  Report Type: 
  Country: None (occurrence: None)
  Receive Date: 20050128
  Receipt Date: 20040428
  Transmission Date: 20050727
  Serious: No
  Sender: FDA-Public Use
  Company Number: US-GLAXOSMITHKLINE-A0508770A

PATIENT
  Sex: Male

DRUGS (4)
  1. COMBIVIR [Suspect]
     Indication: HIV INFECTION
     Dosage: 1TAB TWICE PER DAY
     Route: 048
  2. REYATAZ [Concomitant]
  3. RITONAVIR [Concomitant]
  4. VIREAD [Concomitant]

REACTIONS (1)
  - BLOOD BILIRUBIN INCREASED [None]
